FAERS Safety Report 9821810 (Version 2)
Quarter: 2014Q1

REPORT INFORMATION
  Report Type: Spontaneous
  Country: TR (occurrence: TR)
  Receive Date: 20140116
  Receipt Date: 20140128
  Transmission Date: 20141002
  Serious: Yes (Hospitalization)
  Sender: FDA-Public Use
  Company Number: TR-UCBSA-108147

PATIENT
  Age: 15 Year
  Sex: Male

DRUGS (6)
  1. VIMPAT [Suspect]
     Indication: EPILEPSY
     Dosage: 100 MG
     Route: 048
     Dates: start: 201307, end: 201401
  2. TEGRETOL [Concomitant]
     Dosage: 400 MG 2X1
     Route: 048
  3. DEPAKIN [Concomitant]
     Dosage: 500 MG + 750 MG
     Route: 048
  4. RIVOTRIL [Concomitant]
     Dosage: 1 MG 2X1
     Route: 048
  5. S-ADENOSYLMETHIONINE (SAM) [Concomitant]
     Indication: ANTIBIOTIC THERAPY
     Dosage: USED FOR ONE WEEK
  6. TEICOPLANIN [Concomitant]
     Indication: ANTIBIOTIC THERAPY
     Dosage: USED FOR 1 WEEK

REACTIONS (2)
  - Arrhythmia [Unknown]
  - Convulsion [Recovering/Resolving]
